FAERS Safety Report 5858755-5 (Version None)
Quarter: 2008Q3

REPORT INFORMATION
  Report Type: 
  Country: None (occurrence: None)
  Receive Date: 20080826
  Receipt Date: 20080820
  Transmission Date: 20090109
  Serious: Yes (Hospitalization)
  Sender: FDA-Public Use
  Company Number: BR-ABBOTT-08P-020-0472030-00

PATIENT
  Sex: Female

DRUGS (8)
  1. HUMIRA [Suspect]
     Indication: RHEUMATOID ARTHRITIS
     Route: 058
     Dates: start: 20080201
  2. DEFLAZACORT [Concomitant]
     Indication: RHEUMATOID ARTHRITIS
  3. LOSARTAN POTASSIUM [Concomitant]
     Indication: CARDIAC DISORDER
  4. HYDROCHLOROTHIAZIDE [Concomitant]
     Indication: CARDIAC DISORDER
  5. ATENOLOL [Concomitant]
     Indication: CARDIAC DISORDER
  6. SIMVASTATIN [Concomitant]
     Indication: CARDIAC DISORDER
  7. PROPATYLNITRATE [Concomitant]
     Indication: CARDIAC DISORDER
  8. ACETYLSALICYLIC ACID SRT [Concomitant]
     Indication: CARDIAC DISORDER

REACTIONS (2)
  - MYOCARDIAL INFARCTION [None]
  - RHEUMATOID ARTHRITIS [None]
